FAERS Safety Report 6491205-7 (Version None)
Quarter: 2009Q4

REPORT INFORMATION
  Report Type: 
  Country: None (occurrence: None)
  Receive Date: 20091211
  Receipt Date: 20091130
  Transmission Date: 20100525
  Serious: Yes (Other)
  Sender: FDA-Public Use
  Company Number: PHHY2009SE39043

PATIENT
  Sex: Female

DRUGS (1)
  1. TEGRETOL RETARD [Suspect]
     Dosage: UNK
     Dates: end: 20090424

REACTIONS (10)
  - DIZZINESS [None]
  - DYSGEUSIA [None]
  - EPILEPSY [None]
  - FATIGUE [None]
  - LICHENOID KERATOSIS [None]
  - PYREXIA [None]
  - SUBARACHNOID HAEMORRHAGE [None]
  - TREMOR [None]
  - VENOUS THROMBOSIS LIMB [None]
  - VISION BLURRED [None]
